FAERS Safety Report 20030689 (Version 1)
Quarter: 2021Q4

REPORT INFORMATION
  Report Type: Spontaneous
  Country: CA (occurrence: CA)
  Receive Date: 20211103
  Receipt Date: 20211103
  Transmission Date: 20220303
  Serious: Yes (Hospitalization)
  Sender: FDA-Public Use
  Company Number: CA-TEVA-2021-CA-1971631

PATIENT
  Age: 85 Year
  Sex: Female

DRUGS (8)
  1. SILDENAFIL CITRATE [Suspect]
     Active Substance: SILDENAFIL CITRATE
     Indication: Pulmonary arterial hypertension
     Dosage: 40 MILLIGRAM DAILY;
     Route: 048
  2. ACEBUTOLOL [Concomitant]
     Active Substance: ACEBUTOLOL
  3. COLCHICINE [Concomitant]
     Active Substance: COLCHICINE
  4. FUROSEMIDE [Concomitant]
     Active Substance: FUROSEMIDE
  5. LASIX [Concomitant]
     Active Substance: FUROSEMIDE
  6. PANTOPRAZOLE [Concomitant]
     Active Substance: PANTOPRAZOLE
  7. SPIRONOLACTONE [Concomitant]
     Active Substance: SPIRONOLACTONE
  8. WARFARIN [Concomitant]
     Active Substance: WARFARIN

REACTIONS (7)
  - Asthenia [Not Recovered/Not Resolved]
  - Blood iron decreased [Not Recovered/Not Resolved]
  - Dyspnoea [Not Recovered/Not Resolved]
  - Limb discomfort [Not Recovered/Not Resolved]
  - Muscular weakness [Not Recovered/Not Resolved]
  - Nausea [Not Recovered/Not Resolved]
  - Presyncope [Not Recovered/Not Resolved]
